FAERS Safety Report 6887711-3 (Version None)
Quarter: 2010Q3

REPORT INFORMATION
  Report Type: 
  Country: None (occurrence: None)
  Receive Date: 20100726
  Receipt Date: 20100712
  Transmission Date: 20110219
  Serious: Yes (Hospitalization, Other)
  Sender: FDA-Public Use
  Company Number: AEISR201000262

PATIENT
  Age: 76 Year
  Sex: Female

DRUGS (8)
  1. GAMIMUNE [Suspect]
     Indication: MYASTHENIA GRAVIS
     Dosage: 2 MG/KG; QM; IV
     Route: 042
  2. BROTIZOLAM [Concomitant]
  3. LORAZEPAM [Concomitant]
  4. SIMVASTATIN [Concomitant]
  5. LEVOTHYROXINE SODIUM [Concomitant]
  6. AMLODIPINE [Concomitant]
  7. ASPIRIN [Concomitant]
  8. PYRIDOSTIGMINE BROMIDE [Concomitant]

REACTIONS (8)
  - ACUTE MYOCARDIAL INFARCTION [None]
  - ELECTROCARDIOGRAM ST SEGMENT DEPRESSION [None]
  - ELECTROCARDIOGRAM T WAVE INVERSION [None]
  - HAEMOGLOBIN INCREASED [None]
  - INFUSION RELATED REACTION [None]
  - LEUKOCYTOSIS [None]
  - SYNCOPE [None]
  - THROMBOCYTOPENIA [None]
